FAERS Safety Report 8908546 (Version 4)
Quarter: 2013Q1

REPORT INFORMATION
  Report Type: Spontaneous
  Country: US (occurrence: US)
  Receive Date: 20121114
  Receipt Date: 20130201
  Transmission Date: 20140127
  Serious: No
  Sender: FDA-Public Use
  Company Number: US-ASTRAZENECA-2012SE80439

PATIENT
  Age: 79 Year
  Sex: Female

DRUGS (1)
  1. SYMBICORT PMDI [Suspect]
     Route: 055

REACTIONS (7)
  - Chronic obstructive pulmonary disease [Unknown]
  - Dyspnoea [Unknown]
  - Malaise [Unknown]
  - Inflammation [Unknown]
  - Pulmonary congestion [Unknown]
  - Multiple allergies [Unknown]
  - Cough [Unknown]
